FAERS Safety Report 26030530 (Version 1)
Quarter: 2025Q4

REPORT INFORMATION
  Report Type: Spontaneous
  Country: US (occurrence: US)
  Receive Date: 20251112
  Receipt Date: 20251112
  Transmission Date: 20260117
  Serious: Yes (Other)
  Sender: ROCHE
  Company Number: US-ROCHE-10000431349

PATIENT
  Age: 29 Year
  Sex: Female

DRUGS (10)
  1. XOLAIR [Suspect]
     Active Substance: OMALIZUMAB
     Indication: Angioedema
     Dosage: STRENGTH: 300 MG/2ML?INJECT 1 PEN UNDER THE SKIN
     Route: 058
     Dates: start: 20241025
  2. AZELASTINE SPR 0.15% [Concomitant]
  3. BUPROPION TAB 300MG XL [Concomitant]
  4. FAMOTIDINE [Concomitant]
     Active Substance: FAMOTIDINE
  5. FEROSUL TAB 325MG [Concomitant]
  6. FEXOFENADINE HYDROCHLORIDE [Concomitant]
     Active Substance: FEXOFENADINE HYDROCHLORIDE
  7. FLUTICASONE [Concomitant]
     Active Substance: FLUTICASONE
  8. FUROSEMIDE TAB 20 MG [Concomitant]
  9. GABAPENTIN [Concomitant]
     Active Substance: GABAPENTIN
     Dosage: CAP 400MG
  10. ACETAMINOPHEN\HYDROCODONE [Concomitant]
     Active Substance: ACETAMINOPHEN\HYDROCODONE

REACTIONS (2)
  - Off label use [Unknown]
  - Seizure [Unknown]

NARRATIVE: CASE EVENT DATE: 20251017
